FAERS Safety Report 5802916-8 (Version None)
Quarter: 2008Q3

REPORT INFORMATION
  Report Type: 
  Country: None (occurrence: None)
  Receive Date: 20080703
  Receipt Date: 20061004
  Transmission Date: 20090109
  Serious: Yes (Other)
  Sender: FDA-Public Use
  Company Number: US023742

PATIENT
  Sex: Female
  Weight: 0.9934 kg

DRUGS (2)
  1. GABITRIL [Suspect]
     Indication: GENERALISED ANXIETY DISORDER
     Dosage: ONE TABLET BID TRANSPLACENTAL
     Route: 064
     Dates: end: 20050126
  2. PLACEBO [Suspect]
     Indication: GENERALISED ANXIETY DISORDER
     Dosage: ONE TABLET BID ORAL
     Route: 048
     Dates: end: 20060126

REACTIONS (2)
  - MATERNAL DRUGS AFFECTING FOETUS [None]
  - PREMATURE BABY [None]
